FAERS Safety Report 4492141-8 (Version None)
Quarter: 2004Q3

REPORT INFORMATION
  Report Type: 
  Country: None (occurrence: None)
  Receive Date: 20040924
  Receipt Date: 20040602
  Transmission Date: 20050211
  Serious: Yes (Life-Threatening)
  Sender: FDA-Public Use
  Company Number: 04P-163-0262892-00

PATIENT
  Age: 38 Year
  Sex: Male
  Weight: 78.9259 kg

DRUGS (6)
  1. KALETRA [Suspect]
     Indication: HIV INFECTION
     Dosage: 1 CAPSULE, 2 IN 1 D, PER ORAL
     Route: 048
     Dates: start: 20040123
  2. STAVUDINE [Suspect]
     Dosage: 40 MG, 2 IN 1 D, PER ORAL
     Route: 048
     Dates: start: 20040123
  3. LAMIVUDINE [Suspect]
     Indication: HIV INFECTION
     Dosage: 150 MG, 2 IN 1 D, PER ORAL
     Route: 048
     Dates: start: 20040123
  4. BACTRIM [Concomitant]
  5. AZITHROMYCIN [Concomitant]
  6. FLUCONAZOLE [Concomitant]

REACTIONS (1)
  - BLOOD TRIGLYCERIDES INCREASED [None]
